FAERS Safety Report 15632797 (Version 2)
Quarter: 2018Q4

REPORT INFORMATION
  Report Type: Spontaneous
  Country: US (occurrence: US)
  Receive Date: 20181119
  Receipt Date: 20181128
  Transmission Date: 20190205
  Serious: No
  Sender: FDA-Public Use
  Company Number: US-SUNOVION-2018SUN004450

PATIENT
  Sex: Female
  Weight: 52.15 kg

DRUGS (2)
  1. LONHALA MAGNAIR [Suspect]
     Active Substance: GLYCOPYRROLATE
     Indication: CHRONIC OBSTRUCTIVE PULMONARY DISEASE
     Dosage: 25 ?G/1ML, BID
     Route: 055
     Dates: start: 201811
  2. XANAX [Concomitant]
     Active Substance: ALPRAZOLAM
     Dosage: 1/2 TABLET OF 0.25MG PRN UP TO BID

REACTIONS (5)
  - Tremor [Unknown]
  - Nervousness [Unknown]
  - Anxiety [Unknown]
  - Feeling abnormal [Unknown]
  - Dizziness [Unknown]
